FAERS Safety Report 7469824-0 (Version None)
Quarter: 2011Q2

REPORT INFORMATION
  Report Type: 
  Country: None (occurrence: None)
  Receive Date: 20110510
  Receipt Date: 20110502
  Transmission Date: 20111010
  Serious: Yes (Other)
  Sender: FDA-Public Use
  Company Number: US-US-EMD SERONO, INC.-233249K03USA

PATIENT
  Sex: Female

DRUGS (5)
  1. INSULIN [Concomitant]
     Indication: DIABETES MELLITUS
  2. UNSPECIFIED MEDICATIONS [Concomitant]
  3. REBIF [Suspect]
     Indication: MULTIPLE SCLEROSIS
     Route: 058
     Dates: start: 20030428
  4. CONTINUOUS POSITIVE AIRWAY PRESSURE [Concomitant]
     Indication: SLEEP APNOEA SYNDROME
  5. SYNTHROID [Concomitant]
     Indication: HYPOTHYROIDISM

REACTIONS (3)
  - INJECTION SITE INDURATION [None]
  - HEPATIC CIRRHOSIS [None]
  - INFLUENZA LIKE ILLNESS [None]
